FAERS Safety Report 25122929 (Version 5)
Quarter: 2025Q3

REPORT INFORMATION
  Report Type: Report from Study
  Country: KR (occurrence: KR)
  Receive Date: 20250326
  Receipt Date: 20250929
  Transmission Date: 20251020
  Serious: Yes (Hospitalization)
  Sender: MYLAN
  Company Number: KR-MYLANLABS-2025M1023896

PATIENT
  Age: 70 Year
  Sex: Male

DRUGS (25)
  1. PRETOMANID [Suspect]
     Active Substance: PRETOMANID
     Indication: Tuberculosis
  2. BEDAQUILINE [Suspect]
     Active Substance: BEDAQUILINE
     Indication: Tuberculosis
     Dosage: 400 MILLIGRAM, QD
     Dates: start: 20250227, end: 20250314
  3. BEDAQUILINE [Suspect]
     Active Substance: BEDAQUILINE
     Dosage: 200 MILLIGRAM, QD
     Dates: start: 20250315
  4. LINEZOLID [Suspect]
     Active Substance: LINEZOLID
     Indication: Tuberculosis
  5. Moveloxin [Concomitant]
     Indication: Tuberculosis
     Dosage: 400 MILLIGRAM, QD
     Dates: start: 20250227
  6. ASPIRIN [Concomitant]
     Active Substance: ASPIRIN
     Indication: Acute myocardial infarction
     Dosage: 100 MILLIGRAM, QD
     Dates: start: 20230823
  7. EFFIENT [Concomitant]
     Active Substance: PRASUGREL HYDROCHLORIDE
     Indication: Acute myocardial infarction
     Dosage: 5 MILLIGRAM, QD
     Dates: start: 20230824
  8. Conbloc [Concomitant]
     Indication: Acute myocardial infarction
     Dosage: 1 DOSAGE FORM, QD
     Dates: start: 20230824
  9. ATORVASTATIN CALCIUM\EZETIMIBE [Concomitant]
     Active Substance: ATORVASTATIN CALCIUM\EZETIMIBE
     Indication: Acute myocardial infarction
     Dosage: 1 DOSAGE FORM, QD
     Dates: start: 20230824
  10. LANSOPRAZOLE [Concomitant]
     Active Substance: LANSOPRAZOLE
     Indication: Prophylaxis
     Dosage: 1 DOSAGE FORM, QD
     Dates: start: 20230824
  11. PANTOPRAZOLE SODIUM [Concomitant]
     Active Substance: PANTOPRAZOLE SODIUM
     Indication: Prophylaxis
     Dosage: 40 MILLIGRAM, QD
     Dates: start: 20250313
  12. DIETARY SUPPLEMENT\HERBALS\MILK THISTLE [Concomitant]
     Active Substance: MILK THISTLE
     Indication: Liver function test abnormal
     Dosage: 140 MILLIGRAM, TID
     Dates: start: 20250319, end: 20250325
  13. DIETARY SUPPLEMENT\HERBALS\MILK THISTLE [Concomitant]
     Active Substance: MILK THISTLE
     Dates: start: 20250325, end: 20250422
  14. DIETARY SUPPLEMENT\HERBALS\MILK THISTLE [Concomitant]
     Active Substance: MILK THISTLE
  15. GLUCOPHAGE [Concomitant]
     Active Substance: METFORMIN HYDROCHLORIDE
     Indication: Diabetes mellitus
     Dosage: 1000 MILLIGRAM, QD
     Dates: start: 2013
  16. TRAZODONE [Concomitant]
     Active Substance: TRAZODONE HYDROCHLORIDE
     Indication: Insomnia
     Dosage: 50 MILLIGRAM, QD
     Dates: start: 2025
  17. LORAZEPAM [Concomitant]
     Active Substance: LORAZEPAM
     Indication: Insomnia
     Dosage: 1 MILLIGRAM, QD
     Dates: start: 2025
  18. ALPHA LIPOIC ACID [Concomitant]
     Active Substance: .ALPHA.-LIPOIC ACID
     Indication: Prophylaxis
     Dosage: 600 MILLIGRAM, QD
     Dates: start: 2025
  19. Razepam [Concomitant]
     Indication: Insomnia
     Dosage: 1 MILLIGRAM, QD
     Dates: start: 2025
  20. AMARYL [Concomitant]
     Active Substance: GLIMEPIRIDE
     Indication: Diabetes mellitus
     Dosage: 2 MILLIGRAM, QD
     Dates: start: 2013
  21. LYRICA [Concomitant]
     Active Substance: PREGABALIN
     Indication: Prophylaxis
     Dosage: 75 MILLIGRAM, QD
     Dates: start: 2025
  22. LYRICA [Concomitant]
     Active Substance: PREGABALIN
     Dosage: 50 MILLIGRAM, QD
     Dates: start: 2025
  23. GLIMEPIRIDE\METFORMIN [Concomitant]
     Active Substance: GLIMEPIRIDE\METFORMIN
     Indication: Diabetes mellitus
     Dosage: 2 DOSAGE FORM, BID
     Dates: start: 20250507
  24. XYZAL [Concomitant]
     Active Substance: LEVOCETIRIZINE DIHYDROCHLORIDE
     Indication: Pruritus
     Dosage: 5 MILLIGRAM, BID
     Dates: start: 20250709
  25. Pennel [Concomitant]
     Indication: Liver function test abnormal
     Dosage: 3 DOSAGE FORM, TID
     Dates: start: 20250423

REACTIONS (3)
  - Melaena [Recovered/Resolved]
  - Hypoglycaemia [Recovered/Resolved]
  - Pruritus [Recovering/Resolving]

NARRATIVE: CASE EVENT DATE: 20250306
